FAERS Safety Report 11220936 (Version 1)
Quarter: 2015Q2

REPORT INFORMATION
  Report Type: Spontaneous
  Country: US (occurrence: None)
  Receive Date: 20150625
  Receipt Date: 20150625
  Transmission Date: 20150821
  Serious: No
  Sender: FDA-Public Use
  Company Number: None

PATIENT
  Age: 70 Year
  Sex: Female

DRUGS (1)
  1. MYCOPHENOLATE [Suspect]
     Active Substance: MYCOPHENOLIC ACID
     Dosage: MYCOPHENOLATE TWICE A DAY ORAL
     Route: 048
     Dates: start: 20080313, end: 20150622

REACTIONS (3)
  - Back pain [None]
  - Arthritis [None]
  - Neck pain [None]

NARRATIVE: CASE EVENT DATE: 20150622
